FAERS Safety Report 10830461 (Version 2)
Quarter: 2019Q2

REPORT INFORMATION
  Report Type: Spontaneous
  Country: US (occurrence: US)
  Receive Date: 20150219
  Receipt Date: 20190614
  Transmission Date: 20190711
  Serious: No
  Sender: FDA-Public Use
  Company Number: US-JNJFOC-20150201354

PATIENT
  Sex: Male

DRUGS (21)
  1. RISPERDAL [Suspect]
     Active Substance: RISPERIDONE
     Indication: AGGRESSION
     Route: 048
     Dates: start: 200906
  2. RISPERDAL [Suspect]
     Active Substance: RISPERIDONE
     Indication: AGGRESSION
     Route: 048
     Dates: start: 200205, end: 200401
  3. RISPERDAL [Suspect]
     Active Substance: RISPERIDONE
     Indication: FRAGILE X SYNDROME
     Route: 048
     Dates: start: 200407, end: 200501
  4. RISPERDAL [Suspect]
     Active Substance: RISPERIDONE
     Indication: FRAGILE X SYNDROME
     Dosage: DOSE VARYING 0.5 TO 1 MG
     Route: 048
     Dates: start: 200809, end: 200905
  5. RISPERDAL [Suspect]
     Active Substance: RISPERIDONE
     Indication: WEIGHT INCREASED
     Dosage: DOSE VARYING 0.5 TO 1 MG
     Route: 048
     Dates: start: 200809, end: 200905
  6. RISPERDAL [Suspect]
     Active Substance: RISPERIDONE
     Indication: WEIGHT INCREASED
     Route: 048
     Dates: start: 200403, end: 200406
  7. RISPERDAL [Suspect]
     Active Substance: RISPERIDONE
     Indication: WEIGHT INCREASED
     Route: 048
  8. RISPERDAL [Suspect]
     Active Substance: RISPERIDONE
     Indication: WEIGHT INCREASED
     Route: 048
     Dates: start: 200205, end: 200401
  9. RISPERDAL [Suspect]
     Active Substance: RISPERIDONE
     Indication: WEIGHT INCREASED
     Route: 048
     Dates: start: 200906
  10. RISPERDAL [Suspect]
     Active Substance: RISPERIDONE
     Indication: AGGRESSION
     Dosage: DOSE VARYING 0.5 TO 1 MG
     Route: 048
     Dates: start: 200809, end: 200905
  11. RISPERDAL [Suspect]
     Active Substance: RISPERIDONE
     Indication: AGGRESSION
     Route: 048
  12. RISPERDAL [Suspect]
     Active Substance: RISPERIDONE
     Indication: FRAGILE X SYNDROME
     Route: 048
     Dates: start: 200403, end: 200406
  13. RISPERDAL [Suspect]
     Active Substance: RISPERIDONE
     Indication: AGGRESSION
     Dosage: DOSE VARYING 1-2 MG
     Route: 048
     Dates: start: 200502, end: 200808
  14. RISPERDAL [Suspect]
     Active Substance: RISPERIDONE
     Indication: AGGRESSION
     Route: 048
     Dates: start: 200403, end: 200406
  15. RISPERDAL [Suspect]
     Active Substance: RISPERIDONE
     Indication: WEIGHT INCREASED
     Route: 048
     Dates: start: 200407, end: 200501
  16. RISPERDAL [Suspect]
     Active Substance: RISPERIDONE
     Indication: WEIGHT INCREASED
     Dosage: DOSE VARYING 1-2 MG
     Route: 048
     Dates: start: 200502, end: 200808
  17. RISPERDAL [Suspect]
     Active Substance: RISPERIDONE
     Indication: AGGRESSION
     Route: 048
     Dates: start: 200407, end: 200501
  18. RISPERDAL [Suspect]
     Active Substance: RISPERIDONE
     Indication: FRAGILE X SYNDROME
     Route: 048
     Dates: start: 200906
  19. RISPERDAL [Suspect]
     Active Substance: RISPERIDONE
     Indication: FRAGILE X SYNDROME
     Route: 048
     Dates: start: 200205, end: 200401
  20. RISPERDAL [Suspect]
     Active Substance: RISPERIDONE
     Indication: FRAGILE X SYNDROME
     Route: 048
  21. RISPERDAL [Suspect]
     Active Substance: RISPERIDONE
     Indication: FRAGILE X SYNDROME
     Dosage: DOSE VARYING 1-2 MG
     Route: 048
     Dates: start: 200502, end: 200808

REACTIONS (5)
  - Gynaecomastia [Unknown]
  - Galactorrhoea [Unknown]
  - Abnormal weight gain [Unknown]
  - Extrapyramidal disorder [Unknown]
  - Hyperprolactinaemia [Unknown]

NARRATIVE: CASE EVENT DATE: 2000
